FAERS Safety Report 7251423-7 (Version None)
Quarter: 2011Q1

REPORT INFORMATION
  Report Type: 
  Country: None (occurrence: None)
  Receive Date: 20110128
  Receipt Date: 20110114
  Transmission Date: 20110831
  Serious: Yes (Other)
  Sender: FDA-Public Use
  Company Number: DE-GENENTECH-310966

PATIENT
  Age: 75 Year
  Sex: Male

DRUGS (6)
  1. MABTHERA [Suspect]
     Indication: RHEUMATOID ARTHRITIS
     Dosage: UNK
     Route: 065
     Dates: start: 20060112, end: 20100216
  2. QUENSYL [Concomitant]
     Indication: RHEUMATOID ARTHRITIS
     Dosage: UNK
     Dates: start: 20060731
  3. BONIVA [Concomitant]
     Indication: OSTEOPOROSIS
     Dosage: UNK
     Dates: start: 20060601
  4. ACLASTA [Concomitant]
     Indication: OSTEOPOROSIS
     Dosage: UNK
     Dates: start: 20080819
  5. PREDNISOLONE [Suspect]
     Indication: RHEUMATOID ARTHRITIS
     Dosage: UNK
     Dates: start: 19960101
  6. AZATHIOPRINE [Concomitant]
     Indication: RHEUMATOID ARTHRITIS
     Dosage: UNK
     Dates: start: 20061030

REACTIONS (3)
  - VISUAL IMPAIRMENT [None]
  - EYE IRRITATION [None]
  - PROGRESSIVE MULTIFOCAL LEUKOENCEPHALOPATHY [None]
